FAERS Safety Report 9646487 (Version 2)
Quarter: 2014Q1

REPORT INFORMATION
  Report Type: Spontaneous
  Country: US (occurrence: US)
  Receive Date: 20131025
  Receipt Date: 20140124
  Transmission Date: 20141002
  Serious: No
  Sender: FDA-Public Use
  Company Number: US-009507513-1310USA008487

PATIENT
  Sex: Female

DRUGS (16)
  1. SAPHRIS [Suspect]
     Indication: BIPOLAR DISORDER
     Dosage: UNK
     Dates: start: 201310
  2. SAPHRIS [Suspect]
     Indication: SCHIZOPHRENIA
     Dosage: 10 MG, BID
     Route: 060
  3. SAPHRIS [Suspect]
     Dosage: 10 MG, BID
     Route: 060
  4. AMANTADINE HYDROCHLORIDE [Concomitant]
     Dosage: 100 MG, BID
  5. GABAPENTIN [Concomitant]
     Dosage: 300 MG, TID
  6. ZOLOFT [Concomitant]
     Dosage: 50 MG, QD
  7. TRILAFON [Concomitant]
     Dosage: 2 MG, TID
  8. LEVOTHYROXINE SODIUM [Concomitant]
  9. SERTRALINE HYDROCHLORIDE [Concomitant]
  10. ENALAPRIL MALEATE [Concomitant]
  11. BENADRYL [Concomitant]
  12. INSULIN [Concomitant]
  13. CALCIUM CITRATE [Concomitant]
  14. CHOLECALCIFEROL [Concomitant]
  15. ALPHAGAN [Concomitant]
  16. GLYCERIN (+) MENTHOL (+) XYLITOL/XYLITOL [Concomitant]

REACTIONS (10)
  - Speech disorder [Not Recovered/Not Resolved]
  - Malaise [Not Recovered/Not Resolved]
  - Lip pain [Not Recovered/Not Resolved]
  - Feeling drunk [Not Recovered/Not Resolved]
  - Liver disorder [Not Recovered/Not Resolved]
  - Yellow skin [Not Recovered/Not Resolved]
  - Liver tenderness [Not Recovered/Not Resolved]
  - Somnolence [Not Recovered/Not Resolved]
  - Lip swelling [Not Recovered/Not Resolved]
  - Glossodynia [Not Recovered/Not Resolved]
